FAERS Safety Report 25381655 (Version 1)
Quarter: 2025Q2

REPORT INFORMATION
  Report Type: Report from Study
  Country: DE (occurrence: DE)
  Receive Date: 20250531
  Receipt Date: 20250531
  Transmission Date: 20250716
  Serious: Yes (Other)
  Sender: ACCORD
  Company Number: None

PATIENT
  Sex: Female
  Weight: 64.2 kg

DRUGS (6)
  1. LETROZOLE [Suspect]
     Active Substance: LETROZOLE
     Indication: Breast cancer metastatic
     Dosage: 2.5 MG, QD
     Dates: start: 20191010, end: 20220308
  2. FULVESTRANT [Suspect]
     Active Substance: FULVESTRANT
     Indication: Breast cancer metastatic
     Dosage: 500 MG, QMO
     Dates: start: 20220329, end: 20231025
  3. RIBOCICLIB [Suspect]
     Active Substance: RIBOCICLIB
     Indication: Breast cancer metastatic
     Dosage: 400 MG (21 DAYS INTAKE THAN 7 DAYS PAUSE)
     Dates: start: 20191010, end: 20210112
  4. RIBOCICLIB [Suspect]
     Active Substance: RIBOCICLIB
     Indication: Breast cancer metastatic
     Dosage: 200 MG (21 DAYS INTAKE THAN 7 DAYS PAUSE)
     Dates: start: 20210113, end: 20210121
  5. RIBOCICLIB [Suspect]
     Active Substance: RIBOCICLIB
     Indication: Breast cancer metastatic
     Dosage: 400 MG (21 DAYS INTAKE THAN 7 DAYS PAUSE)
     Dates: start: 20210122, end: 20220302
  6. RIBOCICLIB [Suspect]
     Active Substance: RIBOCICLIB
     Indication: Breast cancer metastatic
     Dosage: 400 MG (21 DAYS INTAKE THAN 7 DAYS PAUSE)
     Dates: start: 20220427, end: 20231025

REACTIONS (2)
  - Neutropenia [Recovered/Resolved]
  - Off label use [Unknown]
